FAERS Safety Report 5957946-2 (Version None)
Quarter: 2008Q4

REPORT INFORMATION
  Report Type: 
  Country: None (occurrence: None)
  Receive Date: 20081119
  Receipt Date: 20081110
  Transmission Date: 20090506
  Serious: Yes (Hospitalization, Other)
  Sender: FDA-Public Use
  Company Number: US-AMGEN-QUU318220

PATIENT
  Sex: Female

DRUGS (1)
  1. ENBREL [Suspect]
     Indication: RHEUMATOID ARTHRITIS
     Route: 058
     Dates: start: 19990301

REACTIONS (10)
  - ATRIAL FIBRILLATION [None]
  - CLOSTRIDIAL INFECTION [None]
  - INCREASED TENDENCY TO BRUISE [None]
  - JOINT EFFUSION [None]
  - LIMB INJURY [None]
  - LOCALISED INFECTION [None]
  - MEDICAL DEVICE COMPLICATION [None]
  - OPEN WOUND [None]
  - PAIN [None]
  - SURGERY [None]
